FAERS Safety Report 16905752 (Version 1)
Quarter: 2019Q4

REPORT INFORMATION
  Report Type: Spontaneous
  Country: CA (occurrence: CA)
  Receive Date: 20191010
  Receipt Date: 20191010
  Transmission Date: 20200122
  Serious: Yes (Hospitalization)
  Sender: FDA-Public Use
  Company Number: CA-TEVA-2019-CA-1119352

PATIENT
  Age: 48 Year
  Sex: Female

DRUGS (19)
  1. BETAMETHASONE. [Suspect]
     Active Substance: BETAMETHASONE
     Indication: SUPPORTIVE CARE
     Dosage: 20 MILLIGRAM DAILY;
     Route: 048
  2. DOXORUBICIN HYDROCHLORIDE. [Suspect]
     Active Substance: DOXORUBICIN HYDROCHLORIDE
     Indication: BREAST CANCER
     Route: 042
  3. LEVOFLOXACIN. [Suspect]
     Active Substance: LEVOFLOXACIN
     Indication: TARDIVE DYSKINESIA
     Route: 048
  4. PACLITAXEL. [Suspect]
     Active Substance: PACLITAXEL
     Indication: BREAST CANCER
     Route: 042
  5. EMEND [Suspect]
     Active Substance: APREPITANT
     Indication: SUPPORTIVE CARE
     Dosage: 80 MILLIGRAM DAILY;
     Route: 048
  6. PACLITAXEL. [Suspect]
     Active Substance: PACLITAXEL
     Route: 042
  7. METOCLOPRAMIDE. [Suspect]
     Active Substance: METOCLOPRAMIDE
     Indication: TARDIVE DYSKINESIA
     Route: 048
  8. PROCYTOX [Suspect]
     Active Substance: CYCLOPHOSPHAMIDE
     Indication: BREAST CANCER
     Route: 040
  9. EMEND [Suspect]
     Active Substance: APREPITANT
     Dosage: 125 MILLIGRAM DAILY;
     Route: 048
  10. ENOXAPARIN [Suspect]
     Active Substance: ENOXAPARIN
     Indication: TARDIVE DYSKINESIA
     Dosage: 150 MILLIGRAM DAILY;
     Route: 058
  11. FILGRASTIM [Suspect]
     Active Substance: FILGRASTIM
     Indication: SUPPORTIVE CARE
     Dosage: 480 MILLIGRAM DAILY;
     Route: 065
  12. TRASTUZUMAB. [Suspect]
     Active Substance: TRASTUZUMAB
     Route: 065
  13. PEGFILGRASTIM [Suspect]
     Active Substance: PEGFILGRASTIM
     Indication: SUPPORTIVE CARE
     Route: 058
  14. TRASTUZUMAB. [Suspect]
     Active Substance: TRASTUZUMAB
     Indication: TARDIVE DYSKINESIA
     Route: 065
  15. RANITIDINE. [Suspect]
     Active Substance: RANITIDINE
     Indication: TARDIVE DYSKINESIA
     Dosage: 300 MILLIGRAM DAILY;
     Route: 042
  16. ONDANSETRON HYDROCHLORIDE. [Suspect]
     Active Substance: ONDANSETRON HYDROCHLORIDE
     Indication: SUPPORTIVE CARE
     Route: 048
  17. PACLITAXEL. [Suspect]
     Active Substance: PACLITAXEL
     Route: 042
  18. BETAMETHASONE. [Suspect]
     Active Substance: BETAMETHASONE
     Indication: TARDIVE DYSKINESIA
     Route: 065
  19. LORAZEPAM. [Suspect]
     Active Substance: LORAZEPAM
     Indication: TARDIVE DYSKINESIA
     Dosage: 1 MILLIGRAM DAILY;
     Route: 065

REACTIONS (11)
  - Nausea [Unknown]
  - Dyspnoea [Unknown]
  - Gastrointestinal disorder [Unknown]
  - Rash [Unknown]
  - Atelectasis [Unknown]
  - Computerised tomogram thorax abnormal [Unknown]
  - Pyrexia [Unknown]
  - Cough [Unknown]
  - Fatigue [Unknown]
  - Hypoxia [Unknown]
  - Off label use [Unknown]
